FAERS Safety Report 12705462 (Version 4)
Quarter: 2016Q4

REPORT INFORMATION
  Report Type: Spontaneous
  Country: US (occurrence: US)
  Receive Date: 20160901
  Receipt Date: 20161010
  Transmission Date: 20170207
  Serious: No
  Sender: FDA-Public Use
  Company Number: US-BIOGEN-2016BI00285560

PATIENT
  Age: 78 Year
  Sex: Female

DRUGS (3)
  1. AVONEX [Suspect]
     Active Substance: INTERFERON BETA-1A
     Route: 030
     Dates: start: 20000901, end: 20150901
  2. AVONEX [Suspect]
     Active Substance: INTERFERON BETA-1A
     Indication: MULTIPLE SCLEROSIS
     Route: 030
  3. AVONEX [Suspect]
     Active Substance: INTERFERON BETA-1A
     Route: 030
     Dates: start: 20160915

REACTIONS (7)
  - Cognitive disorder [Not Recovered/Not Resolved]
  - Central nervous system lesion [Not Recovered/Not Resolved]
  - Confusional state [Unknown]
  - Musculoskeletal disorder [Not Recovered/Not Resolved]
  - Brain injury [Not Recovered/Not Resolved]
  - Malaise [Not Recovered/Not Resolved]
  - Back disorder [Recovered/Resolved]

NARRATIVE: CASE EVENT DATE: 20160922
